FAERS Safety Report 4565008-4 (Version None)
Quarter: 2005Q1

REPORT INFORMATION
  Report Type: 
  Country: None (occurrence: None)
  Receive Date: 20050126
  Receipt Date: 20050117
  Transmission Date: 20050727
  Serious: Yes (Life-Threatening)
  Sender: FDA-Public Use
  Company Number: 2004107888

PATIENT
  Age: 56 Year
  Sex: Male

DRUGS (10)
  1. ATENOLOL [Suspect]
     Indication: CARDIAC FAILURE CONGESTIVE
     Dosage: 25 MG, ORAL
     Route: 048
     Dates: start: 20040901, end: 20041023
  2. CARDENALIN            (DOXAZOSIN) [Suspect]
     Indication: CARDIAC FAILURE CONGESTIVE
     Dosage: 2 MG, ORAL
     Route: 048
     Dates: start: 20040801, end: 20041023
  3. VALSARTAN                (VALSARTAN) [Concomitant]
  4. IFENPRODIL TARTRATE            (IFENPRODIL TARTRATE) [Concomitant]
  5. VALPROATE SODIUM [Concomitant]
  6. BENIDIPINE HYDROCHLORIDE          (BENIDIPINE HYDROCHLORIDE) [Concomitant]
  7. ALFACALCIDOL               (ALFACALCIDOL) [Concomitant]
  8. TICLOPIDINE HCL [Concomitant]
  9. CALCIUM CARBONATE          (CALCIUM CARBONATE) [Concomitant]
  10. RABEPRAZOLE SODIUM [Concomitant]

REACTIONS (6)
  - BLOOD PRESSURE INADEQUATELY CONTROLLED [None]
  - CARDIAC FAILURE CONGESTIVE [None]
  - CONDITION AGGRAVATED [None]
  - DIALYSIS [None]
  - DYSPNOEA [None]
  - POLYDIPSIA [None]
